FAERS Safety Report 8307779-7 (Version None)
Quarter: 2012Q2

REPORT INFORMATION
  Report Type: 
  Country: None (occurrence: None)
  Receive Date: 20120424
  Receipt Date: 20120417
  Transmission Date: 20120825
  Serious: Yes (Hospitalization)
  Sender: FDA-Public Use
  Company Number: NL-PFIZER INC-2012094782

PATIENT
  Age: 57 Year
  Sex: Female
  Weight: 69 kg

DRUGS (12)
  1. EXEMESTANE [Suspect]
     Indication: BREAST CANCER
     Dosage: 25 MG, 1X/DAY
     Route: 048
  2. SPIRIVA [Concomitant]
  3. LANOXIN [Concomitant]
  4. MIRTAZAPINE [Concomitant]
  5. PAROXETINE [Concomitant]
  6. PERINDOPRIL [Concomitant]
  7. PHENPROCOUMON [Concomitant]
  8. BUMETANIDE [Concomitant]
  9. CARVEDILOL [Concomitant]
  10. INSPRA [Concomitant]
  11. BECLOMETHASONE DIPROPIONATE [Concomitant]
  12. SLOW-K [Concomitant]

REACTIONS (1)
  - PNEUMOCOCCAL BACTERAEMIA [None]
